FAERS Safety Report 13314174 (Version 1)
Quarter: 2017Q1

REPORT INFORMATION
  Report Type: Spontaneous
  Country: US (occurrence: US)
  Receive Date: 20170309
  Receipt Date: 20170309
  Transmission Date: 20170428
  Serious: No
  Sender: FDA-Public Use
  Company Number: US-TURING PHARMACEUTICALS-2016TNG00033

PATIENT
  Sex: Male

DRUGS (3)
  1. DARAPRIM [Suspect]
     Active Substance: PYRIMETHAMINE
     Dosage: 75 MG, 1X/DAY
     Route: 048
     Dates: start: 20160412
  2. LEUCOVORIN. [Concomitant]
     Active Substance: LEUCOVORIN
  3. SULFADIAZINE. [Concomitant]
     Active Substance: SULFADIAZINE

REACTIONS (2)
  - Micturition disorder [Unknown]
  - Chromaturia [Unknown]

NARRATIVE: CASE EVENT DATE: 2016
